FAERS Safety Report 24540492 (Version 5)
Quarter: 2025Q1

REPORT INFORMATION
  Report Type: Spontaneous
  Country: JP (occurrence: JP)
  Receive Date: 20241023
  Receipt Date: 20250303
  Transmission Date: 20250408
  Serious: Yes (Hospitalization, Other)
  Sender: ALEXION PHARMACEUTICALS
  Company Number: JP-ASTRAZENECA-240108762_013020_P_1

PATIENT
  Age: 69 Year
  Weight: 76 kg

DRUGS (22)
  1. OSIMERTINIB [Suspect]
     Active Substance: OSIMERTINIB
     Indication: Non-small cell lung cancer
     Dosage: 80 MILLIGRAM, QD
  2. OSIMERTINIB [Suspect]
     Active Substance: OSIMERTINIB
     Dosage: 80 MILLIGRAM, QD
  3. SYMBICORT [Suspect]
     Active Substance: BUDESONIDE\FORMOTEROL FUMARATE DIHYDRATE
     Indication: Cough
     Dosage: 2 IN THE MORNING, 2 IN THE EVENING
  4. SYMBICORT [Suspect]
     Active Substance: BUDESONIDE\FORMOTEROL FUMARATE DIHYDRATE
     Indication: Cough variant asthma
  5. XARELTO [Concomitant]
     Active Substance: RIVAROXABAN
     Indication: Atrial fibrillation
  6. XARELTO [Concomitant]
     Active Substance: RIVAROXABAN
     Dosage: 15 MILLIGRAM, QD
  7. XARELTO [Concomitant]
     Active Substance: RIVAROXABAN
     Dosage: 15 MILLIGRAM
  8. AMLODIPINE [Concomitant]
     Active Substance: AMLODIPINE BESYLATE
     Indication: Hypertension
  9. AMLODIPINE [Concomitant]
     Active Substance: AMLODIPINE BESYLATE
  10. AMLODIPINE [Concomitant]
     Active Substance: AMLODIPINE BESYLATE
     Dosage: 2.5 MILLIGRAM
  11. OLMESARTAN [Concomitant]
     Active Substance: OLMESARTAN
     Indication: Hypertension
     Dosage: 10 MILLIGRAM, QD
  12. OLMESARTAN [Concomitant]
     Active Substance: OLMESARTAN
     Dosage: 10 MILLIGRAM, QD
  13. OLMESARTAN [Concomitant]
     Active Substance: OLMESARTAN
  14. FAMOTIDINE [Concomitant]
     Active Substance: FAMOTIDINE
     Indication: Gastritis
  15. FAMOTIDINE [Concomitant]
     Active Substance: FAMOTIDINE
  16. FAMOTIDINE [Concomitant]
     Active Substance: FAMOTIDINE
     Dosage: 20 MILLIGRAM
  17. MIYA-BM [Concomitant]
     Active Substance: CLOSTRIDIUM BUTYRICUM SPORES STRAIN M-55
     Indication: Enterocolitis
  18. MIYA-BM [Concomitant]
     Active Substance: CLOSTRIDIUM BUTYRICUM SPORES STRAIN M-55
     Dosage: 1 GRAM, TID
  19. MIYA-BM [Concomitant]
     Active Substance: CLOSTRIDIUM BUTYRICUM SPORES STRAIN M-55
     Dosage: 1 GRAM, TID
  20. ZOFRAN [Concomitant]
     Active Substance: ONDANSETRON HYDROCHLORIDE
  21. GEFITINIB [Suspect]
     Active Substance: GEFITINIB
  22. GEFITINIB [Suspect]
     Active Substance: GEFITINIB
     Indication: Non-small cell lung cancer
     Dosage: 250 MILLIGRAM, QD

REACTIONS (8)
  - Plasma cell myeloma [Recovering/Resolving]
  - Carcinoembryonic antigen increased [Unknown]
  - Bacterial infection [Unknown]
  - Pneumonia [Recovering/Resolving]
  - Gastrooesophageal reflux disease [Unknown]
  - Oedema peripheral [Unknown]
  - Tonsillitis [Recovering/Resolving]
  - Off label use [Unknown]
